FAERS Safety Report 8380313-1 (Version None)
Quarter: 2012Q2

REPORT INFORMATION
  Report Type: 
  Country: None (occurrence: None)
  Receive Date: 20120523
  Receipt Date: 20120517
  Transmission Date: 20120825
  Serious: Yes (Other)
  Sender: FDA-Public Use
  Company Number: US-PFIZER INC-2012120949

PATIENT
  Sex: Female
  Weight: 49.887 kg

DRUGS (3)
  1. PROTONIX [Suspect]
     Indication: GASTROINTESTINAL DISORDER
     Dosage: UNK
     Dates: end: 20110101
  2. PROTONIX [Suspect]
     Indication: IRRITABLE BOWEL SYNDROME
  3. NORVASC [Concomitant]
     Indication: HYPERTENSION
     Dosage: 5 MG, DAILY

REACTIONS (5)
  - WEIGHT INCREASED [None]
  - INTERVERTEBRAL DISC PROTRUSION [None]
  - DEPRESSION [None]
  - PERIPHERAL NERVE INJURY [None]
  - WEIGHT DECREASED [None]
